FAERS Safety Report 8470445-1 (Version None)
Quarter: 2012Q2

REPORT INFORMATION
  Report Type: 
  Country: None (occurrence: None)
  Receive Date: 20120627
  Receipt Date: 20120613
  Transmission Date: 20120825
  Serious: Yes (Hospitalization)
  Sender: FDA-Public Use
  Company Number: DE-MYLANLABS-2012S1012425

PATIENT
  Age: 70 Year
  Sex: Male

DRUGS (2)
  1. CARBIDOPA AND LEVODOPA [Suspect]
     Dosage: THE PATIENT ADDITIONALLY TOOK 300MG BEFORE GOING TO SLEEP AND DURING NIGHTTIME WAKING PERIODS
     Route: 065
  2. CARBIDOPA AND LEVODOPA [Suspect]
     Indication: PARKINSON'S DISEASE
     Dosage: PUMP RATE 5.4 ML/HOUR + MORNING DOSE OF 10ML AND EXTRA DOSES OF 3ML AS NEEDED; SWITCHED OFF AT NIGHT

REACTIONS (6)
  - BEZOAR [None]
  - PICA [None]
  - THERAPEUTIC RESPONSE DECREASED [None]
  - TRICHOTILLOMANIA [None]
  - ON AND OFF PHENOMENON [None]
  - AFFECT LABILITY [None]
